FAERS Safety Report 6140803-9 (Version None)
Quarter: 2009Q2

REPORT INFORMATION
  Report Type: 
  Country: None (occurrence: None)
  Receive Date: 20090401
  Receipt Date: 20090401
  Transmission Date: 20091009
  Serious: No
  Sender: FDA-Public Use
  Company Number: None

PATIENT
  Age: 86 Year
  Sex: Female

DRUGS (1)
  1. MEGESTROL ACETATE [Suspect]
     Indication: ANOREXIA
     Dosage: 1/2 DAILY
     Dates: start: 20090113, end: 20090123

REACTIONS (4)
  - BURNING SENSATION [None]
  - DYSSTASIA [None]
  - JOINT SWELLING [None]
  - OEDEMA PERIPHERAL [None]
